FAERS Safety Report 18106173 (Version 1)
Quarter: 2020Q3

REPORT INFORMATION
  Report Type: Spontaneous
  Country: GB (occurrence: GB)
  Receive Date: 20200803
  Receipt Date: 20200803
  Transmission Date: 20201103
  Serious: Yes (Other)
  Sender: FDA-Public Use
  Company Number: GB-MYLANLABS-2020M1068155

PATIENT
  Age: 54 Year
  Sex: Female

DRUGS (13)
  1. CARBOPLATIN. [Suspect]
     Active Substance: CARBOPLATIN
     Dosage: COMPLETED 6 CYCLES PALLIATIVE CHEMOTHERAPY
     Route: 065
     Dates: start: 200707, end: 200712
  2. PACLITAXEL. [Suspect]
     Active Substance: PACLITAXEL
     Dosage: COMPLETED 6 CYCLES OF CHEMOTHERAPY
     Route: 065
     Dates: end: 200606
  3. PACLITAXEL. [Suspect]
     Active Substance: PACLITAXEL
     Dosage: COMPLETED 6 CYCLES PALLIATIVE CHEMOTHERAPY
     Route: 065
     Dates: start: 200707, end: 200712
  4. ANASTROZOLE. [Suspect]
     Active Substance: ANASTROZOLE
     Indication: OVARIAN CANCER STAGE III
     Dosage: UNK
     Route: 065
     Dates: start: 201612
  5. GEMCITABINE. [Suspect]
     Active Substance: GEMCITABINE
     Indication: OVARIAN CANCER STAGE III
     Dosage: UNK
     Route: 065
     Dates: start: 201512, end: 201605
  6. PACLITAXEL. [Suspect]
     Active Substance: PACLITAXEL
     Indication: OVARIAN CANCER STAGE III
     Dosage: CHEMOTHERAPY X 3 CYCLES
     Route: 065
     Dates: start: 200906
  7. CAELYX [Suspect]
     Active Substance: DOXORUBICIN HYDROCHLORIDE
     Indication: OVARIAN CANCER STAGE III
     Dosage: UNK
     Route: 065
     Dates: end: 200908
  8. CARBOPLATIN. [Suspect]
     Active Substance: CARBOPLATIN
     Indication: OVARIAN CANCER STAGE III
     Dosage: CARBOPLATIN CHEMOTHERAPY 8 CYCLES
     Route: 065
     Dates: start: 201512, end: 201605
  9. CARBOPLATIN. [Suspect]
     Active Substance: CARBOPLATIN
     Dosage: COMPLETED 6 CYCLES OF CHEMOTHERAPY
     Route: 065
     Dates: end: 200606
  10. CARBOPLATIN. [Suspect]
     Active Substance: CARBOPLATIN
     Dosage: CHEMOTHERAPY X 3 CYCLES
     Route: 065
     Dates: start: 200906
  11. TAMOXIFEN [Suspect]
     Active Substance: TAMOXIFEN
     Indication: OVARIAN CANCER STAGE III
     Dosage: UNK
     Route: 065
     Dates: start: 201401
  12. LETROZOLE. [Suspect]
     Active Substance: LETROZOLE
     Indication: OVARIAN CANCER STAGE III
     Dosage: UNK
     Route: 065
     Dates: start: 201506, end: 201511
  13. TOPOTECAN [Suspect]
     Active Substance: TOPOTECAN HYDROCHLORIDE
     Indication: OVARIAN CANCER STAGE III
     Dosage: UNK (COMPLETED 6 CYCLES PALLIATIVE TOPOTECAN CHEMOTHERAPY)
     Route: 065
     Dates: start: 202003

REACTIONS (2)
  - Drug ineffective [Unknown]
  - Ovarian cancer stage IV [Unknown]
